FAERS Safety Report 18221335 (Version 1)
Quarter: 2020Q3

REPORT INFORMATION
  Report Type: Spontaneous
  Country: US (occurrence: US)
  Receive Date: 20200901
  Receipt Date: 20200901
  Transmission Date: 20201103
  Serious: Yes (Hospitalization)
  Sender: FDA-Public Use
  Company Number: None

PATIENT
  Sex: Female

DRUGS (12)
  1. RITALIN LA [Suspect]
     Active Substance: METHYLPHENIDATE HYDROCHLORIDE
  2. METHOTREXATE. [Suspect]
     Active Substance: METHOTREXATE
  3. PROZAC [Suspect]
     Active Substance: FLUOXETINE HYDROCHLORIDE
  4. RITALIN [Suspect]
     Active Substance: METHYLPHENIDATE HYDROCHLORIDE
  5. ARIPIPRAZOLE. [Suspect]
     Active Substance: ARIPIPRAZOLE
  6. TALTZ [Suspect]
     Active Substance: IXEKIZUMAB
     Indication: PSORIASIS
     Dosage: ?          OTHER DOSE:1 PEN;?
     Route: 058
     Dates: start: 20160813
  7. ABILIFY [Suspect]
     Active Substance: ARIPIPRAZOLE
  8. DESVENLAFAX, PRISTIQ [Concomitant]
     Active Substance: DESVENLAFAXINE
  9. FLUOXETINE [Suspect]
     Active Substance: FLUOXETINE HYDROCHLORIDE
  10. PERCOCET [Suspect]
     Active Substance: ACETAMINOPHEN\OXYCODONE HYDROCHLORIDE
  11. DEXTROAMPHET SACCHARAT, AMPHET ASPARTATE, DEXTROAMPHET SULFATE AND AMPHET SULFAT [Suspect]
     Active Substance: AMPHETAMINE ASPARTATE\AMPHETAMINE SULFATE\DEXTROAMPHETAMINE SACCHARATE\DEXTROAMPHETAMINE SULFATE
  12. FOLIC ACID. [Suspect]
     Active Substance: FOLIC ACID

REACTIONS (3)
  - Coronavirus infection [None]
  - Therapy interrupted [None]
  - Condition aggravated [None]
